FAERS Safety Report 5293599-7 (Version None)
Quarter: 2007Q2

REPORT INFORMATION
  Report Type: 
  Country: None (occurrence: None)
  Receive Date: 20070405
  Receipt Date: 20070402
  Transmission Date: 20071010
  Serious: Yes (Hospitalization)
  Sender: FDA-Public Use
  Company Number: TCI2007A01300

PATIENT
  Age: 81 Year
  Sex: Male

DRUGS (4)
  1. LEUPROLIDE ACETATE [Suspect]
     Indication: PROSTATE CANCER STAGE II
     Dosage: 11.25 MG (11;25 MG, 1 IN 12 WK); SUBCUTANEOUS
     Route: 058
     Dates: start: 20060824, end: 20061116
  2. LEUPROLIDE ACETATE [Suspect]
     Indication: PROSTATE CANCER STAGE II
     Dosage: 3.75 MG (3.75 MG, 1 IN 28 D); SUBCUTANEOUS
     Route: 058
     Dates: start: 20060601, end: 20060727
  3. CASODEX [Concomitant]
  4. NEUQUINON (UBIDECARENONE) TABLETS) [Concomitant]

REACTIONS (1)
  - CEREBROVASCULAR DISORDER [None]
